FAERS Safety Report 8437239-4 (Version None)
Quarter: 2012Q2

REPORT INFORMATION
  Report Type: 
  Country: None (occurrence: None)
  Receive Date: 20120614
  Receipt Date: 20120228
  Transmission Date: 20120825
  Serious: No
  Sender: FDA-Public Use
  Company Number: US-AMGEN-USASP2012013199

PATIENT
  Age: 74 Year
  Sex: Female

DRUGS (8)
  1. LIPITOR [Concomitant]
  2. ZETIA [Concomitant]
     Dates: start: 20111201
  3. ASPIRIN [Concomitant]
  4. CALTRATE VITAMINE D3 [Concomitant]
     Dosage: UNK
  5. PROLIA [Suspect]
     Indication: OSTEOPOROSIS
     Dosage: 60 MG, Q6MO
     Dates: start: 20120227
  6. BYSTOLIC [Concomitant]
     Dates: start: 20111201
  7. PLAVIX [Concomitant]
     Dosage: UNK
     Dates: start: 20111201
  8. FISH OIL [Concomitant]

REACTIONS (3)
  - RHINORRHOEA [None]
  - NASOPHARYNGITIS [None]
  - THROAT IRRITATION [None]
